FAERS Safety Report 7145895-6 (Version None)
Quarter: 2010Q4

REPORT INFORMATION
  Report Type: 
  Country: None (occurrence: None)
  Receive Date: 20101208
  Receipt Date: 20101014
  Transmission Date: 20110411
  Serious: Yes (Hospitalization)
  Sender: FDA-Public Use
  Company Number: US-BAYER-200942699NA

PATIENT
  Sex: Female
  Weight: 81.818 kg

DRUGS (8)
  1. YAZ [Suspect]
     Indication: CONTRACEPTION
     Route: 048
     Dates: start: 20060101, end: 20070101
  2. YAZ [Suspect]
     Route: 048
     Dates: start: 20070101, end: 20100101
  3. YASMIN [Suspect]
     Indication: CONTRACEPTION
     Dosage: UNK UNK, QD
     Route: 048
     Dates: start: 20060101
  4. OCELLA [Suspect]
     Indication: CONTRACEPTION
     Dates: start: 20080101
  5. HYDROCODONE BITARTRATE AND ACETAMINOPHEN [Concomitant]
     Dosage: 5/500 MG
  6. MEPROZINE [Concomitant]
  7. ULTRAM [Concomitant]
  8. PHENTERMINE [Concomitant]

REACTIONS (4)
  - CHOLECYSTITIS [None]
  - GALLBLADDER DISORDER [None]
  - HYPERPLASTIC CHOLECYSTOPATHY [None]
  - MULTIPLE INJURIES [None]
